FAERS Safety Report 18886335 (Version 5)
Quarter: 2022Q1

REPORT INFORMATION
  Report Type: Report from Study
  Country: FR (occurrence: FR)
  Receive Date: 20210212
  Receipt Date: 20220210
  Transmission Date: 20220423
  Serious: Yes (Other)
  Sender: FDA-Public Use
  Company Number: FR-JNJFOC-20210208258

PATIENT
  Age: 61 Year
  Sex: Male

DRUGS (14)
  1. SPRAVATO [Suspect]
     Active Substance: ESKETAMINE
     Indication: Depression
     Dosage: 56 MG, 3 TOTAL DOSES
     Dates: start: 20200629, end: 20200706
  2. SPRAVATO [Suspect]
     Active Substance: ESKETAMINE
     Dosage: 84 MG, 3 TOTAL DOSES
     Dates: start: 20200709, end: 20200717
  3. SPRAVATO [Suspect]
     Active Substance: ESKETAMINE
     Dates: start: 20201030
  4. SPRAVATO [Suspect]
     Active Substance: ESKETAMINE
     Dosage: 56 MG, 27 TOTAL DOSES
     Dates: start: 20200721, end: 20210707
  5. VORTIOXETINE [Concomitant]
     Active Substance: VORTIOXETINE
     Indication: Antidepressant therapy
  6. LITHIUM [Concomitant]
     Active Substance: LITHIUM
  7. VENLAFAXINE [Concomitant]
     Active Substance: VENLAFAXINE HYDROCHLORIDE
  8. MIRTAZAPINE [Concomitant]
     Active Substance: MIRTAZAPINE
     Indication: Antidepressant therapy
  9. MIRTAZAPINE [Concomitant]
     Active Substance: MIRTAZAPINE
     Dates: start: 20190319
  10. CLOMIPRAMINE [Concomitant]
     Active Substance: CLOMIPRAMINE
     Indication: Antidepressant therapy
     Dates: start: 20190122
  11. LORAZEPAM [Concomitant]
     Active Substance: LORAZEPAM
     Indication: Anxiety
     Dosage: 2 MG/JR
     Dates: start: 20190424
  12. ESTAZOLAM [Concomitant]
     Active Substance: ESTAZOLAM
     Indication: Somnolence
     Dosage: 2 MG/JR
  13. PREGABALIN [Concomitant]
     Active Substance: PREGABALIN
     Indication: Drug dependence
     Dosage: 500 MG/JR
     Dates: start: 20190319
  14. PRAMIPEXOLE [Concomitant]
     Active Substance: PRAMIPEXOLE
     Dosage: 2.62 MG/JR
     Dates: start: 20190408, end: 20200905

REACTIONS (1)
  - Bladder cancer recurrent [Not Recovered/Not Resolved]

NARRATIVE: CASE EVENT DATE: 20210203
